FAERS Safety Report 22334017 (Version 3)
Quarter: 2024Q3

REPORT INFORMATION
  Report Type: Spontaneous
  Country: US (occurrence: US)
  Receive Date: 20230517
  Receipt Date: 20240716
  Transmission Date: 20241016
  Serious: Yes (Other)
  Sender: PFIZER
  Company Number: US-PFIZER INC-US-GBT-019423

PATIENT
  Age: 34 Year
  Sex: Female

DRUGS (6)
  1. OXBRYTA [Suspect]
     Active Substance: VOXELOTOR
     Indication: Sickle cell disease
     Dosage: 1500 MG, 1X/DAY
     Route: 048
     Dates: start: 2021
  2. OXBRYTA [Suspect]
     Active Substance: VOXELOTOR
     Dosage: 500 MG TABLETS X3 ONCE DAILY
     Dates: start: 20230217
  3. CRIZANLIZUMAB [Concomitant]
     Active Substance: CRIZANLIZUMAB
     Dosage: UNK, MONTHLY
     Route: 042
     Dates: start: 202212
  4. ELIQUIS [Concomitant]
     Active Substance: APIXABAN
     Dosage: UNK
  5. FOLIC ACID [Concomitant]
     Active Substance: FOLIC ACID
     Dosage: UNK
  6. HYDROXYUREA [Concomitant]
     Active Substance: HYDROXYUREA
     Dosage: UNK

REACTIONS (1)
  - Sickle cell anaemia with crisis [Unknown]

NARRATIVE: CASE EVENT DATE: 20220101
